FAERS Safety Report 9337516 (Version 1)
Quarter: 2013Q2

REPORT INFORMATION
  Report Type: Spontaneous
  Country: GB (occurrence: GB)
  Receive Date: 20130607
  Receipt Date: 20130607
  Transmission Date: 20140414
  Serious: Yes (Other)
  Sender: FDA-Public Use
  Company Number: GB-ABBOTT-13X-008-1101108-00

PATIENT
  Sex: 0

DRUGS (3)
  1. VALPROATE SODIUM [Suspect]
     Indication: CONVULSION
     Dosage: UNKNOWN; TWICE A DAY
     Route: 065
  2. CLOBAZAM [Interacting]
     Indication: CONVULSION
     Dosage: UNKNOWN; TWICE A DAY
     Route: 065
  3. MOVICOL [Interacting]
     Indication: PRODUCT USED FOR UNKNOWN INDICATION
     Dosage: UNKNOWN; DAILY
     Route: 065

REACTIONS (2)
  - Drug interaction [Recovered/Resolved]
  - Epilepsy [Recovered/Resolved]
